FAERS Safety Report 10284391 (Version 1)
Quarter: 2014Q3

REPORT INFORMATION
  Report Type: Spontaneous
  Country: US (occurrence: None)
  Receive Date: 20140703
  Receipt Date: 20140703
  Transmission Date: 20150326
  Serious: Yes (Hospitalization)
  Sender: FDA-Public Use
  Company Number: UNT-2014-001979

PATIENT
  Age: 70 Year
  Sex: Female

DRUGS (3)
  1. REVATIO (SILDENAFIL CITRATE) [Concomitant]
  2. TYVASO [Suspect]
     Active Substance: TREPROSTINIL
     Indication: PULMONARY ARTERIAL HYPERTENSION
     Route: 055
     Dates: start: 20120709
  3. LETAIRIS [Concomitant]
     Active Substance: AMBRISENTAN

REACTIONS (3)
  - Blood calcium decreased [None]
  - Haemoglobin decreased [None]
  - Blood potassium decreased [None]

NARRATIVE: CASE EVENT DATE: 20140529
